FAERS Safety Report 11352281 (Version 1)
Quarter: 2015Q3

REPORT INFORMATION
  Report Type: Report from Study
  Country: NL (occurrence: NL)
  Receive Date: 20150807
  Receipt Date: 20150807
  Transmission Date: 20151125
  Serious: Yes (Other)
  Sender: FDA-Public Use
  Company Number: NL-AMGEN-NLDSL2015078403

PATIENT
  Age: 92 Year
  Sex: Female

DRUGS (1)
  1. ARANESP [Suspect]
     Active Substance: DARBEPOETIN ALFA
     Indication: MYELODYSPLASTIC SYNDROME
     Dosage: 60 MUG (200 MCG/ML), QWK
     Route: 058

REACTIONS (2)
  - Off label use [Unknown]
  - Terminal state [Not Recovered/Not Resolved]
